FAERS Safety Report 17664152 (Version 5)
Quarter: 2021Q3

REPORT INFORMATION
  Report Type: Report from Study
  Country: JP (occurrence: JP)
  Receive Date: 20200414
  Receipt Date: 20210831
  Transmission Date: 20211014
  Serious: Yes (Hospitalization)
  Sender: FDA-Public Use
  Company Number: JP-ROCHE-2543920

PATIENT
  Age: 54 Year
  Sex: Female
  Weight: 48.6 kg

DRUGS (122)
  1. OBINUTUZUMAB. [Suspect]
     Active Substance: OBINUTUZUMAB
     Indication: FOLLICULAR LYMPHOMA
     Dosage: 1000 MG IV INFUSION, ADMINISTERED ON DAY 1, 8 AND 15 DURING CYCLE 1, AND ON DAY 1 OF SUBSEQUENT CYCL
     Route: 042
     Dates: start: 20190626
  2. TEARBALANCE [Concomitant]
     Active Substance: HYALURONATE SODIUM
     Indication: DRY EYE
     Route: 047
     Dates: start: 2014
  3. FULMETA [Concomitant]
     Active Substance: MOMETASONE
     Indication: ECZEMA
     Dates: start: 20190304
  4. DEXART [Concomitant]
     Active Substance: DEXAMETHASONE SODIUM PHOSPHATE
     Dosage: CYCLE 1 DAY 1 ?START TIME: 09:26?END TIME: 10:09
     Route: 042
     Dates: start: 20190626, end: 20190626
  5. DEXART [Concomitant]
     Active Substance: DEXAMETHASONE SODIUM PHOSPHATE
     Dosage: CYCLE 1 DAY 15?START TIME: 10:52?END TIME: 11:19
     Route: 042
     Dates: start: 20190711, end: 20190711
  6. MAGMITT [Concomitant]
     Active Substance: MAGNESIUM OXIDE
     Indication: CONSTIPATION
     Dates: start: 20190628, end: 20190709
  7. LOXONIN [Concomitant]
     Active Substance: LOXOPROFEN SODIUM
     Indication: BACK PAIN
     Dates: start: 20191012, end: 20191023
  8. CALONAL [Concomitant]
     Active Substance: ACETAMINOPHEN
     Dosage: CYCLE 3 DAY 1?START TIME:10:25?END TIME: 10:25
     Route: 048
     Dates: start: 20190822, end: 20190822
  9. CALONAL [Concomitant]
     Active Substance: ACETAMINOPHEN
     Dosage: CYCLE 5 DAY 1?START TIME:11:35?END TIME: 11:35
     Route: 048
     Dates: start: 20191004, end: 20191004
  10. OXYCODONE [Concomitant]
     Active Substance: OXYCODONE
     Dates: start: 20200101, end: 20200119
  11. OXYCODONE [Concomitant]
     Active Substance: OXYCODONE
     Dates: start: 20200226, end: 20200226
  12. KCL [Concomitant]
     Active Substance: POTASSIUM CHLORIDE
     Dates: start: 20200211, end: 20200211
  13. MEROPENEM. [Concomitant]
     Active Substance: MEROPENEM
     Route: 042
     Dates: start: 20200210, end: 20200212
  14. KENEI ENEMA [Concomitant]
     Dates: start: 20200206, end: 20200206
  15. ADRIACIN [Concomitant]
     Active Substance: DOXORUBICIN HYDROCHLORIDE
     Route: 042
     Dates: start: 20191216, end: 20200129
  16. DIQUAS [Concomitant]
     Active Substance: DIQUAFOSOL TETRASODIUM
     Indication: DRY EYE
     Route: 047
     Dates: start: 2014
  17. VOLTAREN [Concomitant]
     Active Substance: DICLOFENAC SODIUM
     Dates: start: 20191114
  18. OXYCODONE [Concomitant]
     Active Substance: OXYCODONE
     Dates: start: 20200229, end: 20200229
  19. OXYCODONE [Concomitant]
     Active Substance: OXYCODONE
     Dates: start: 20200304, end: 20200304
  20. EURAX [Concomitant]
     Active Substance: CROTAMITON
     Indication: PRURITUS
     Dates: start: 20191205, end: 20200106
  21. D?CHLORPHENIRAMINE MALEATE [Concomitant]
     Active Substance: DEXCHLORPHENIRAMINE MALEATE
     Dosage: CYCLE 2 DAY 1?START TIME: 10:13?END TIME: 10:13
     Route: 048
     Dates: start: 20190725, end: 20190725
  22. D?CHLORPHENIRAMINE MALEATE [Concomitant]
     Active Substance: DEXCHLORPHENIRAMINE MALEATE
     Dosage: CYCLE 3 DAY 1?START TIME: 10:25?END TIME: 10:25
     Route: 048
     Dates: start: 20190822, end: 20190822
  23. D?CHLORPHENIRAMINE MALEATE [Concomitant]
     Active Substance: DEXCHLORPHENIRAMINE MALEATE
     Dosage: CYCLE 5 DAY 1?START TIME: 11:35?END TIME: 11:35
     Route: 048
     Dates: start: 20191024, end: 20191024
  24. FILGRASTIM [Concomitant]
     Active Substance: FILGRASTIM
     Dates: start: 20200206, end: 20200214
  25. MEYLON [Concomitant]
     Active Substance: SODIUM BICARBONATE
     Dates: start: 20200106, end: 20200129
  26. POLARAMINE [Concomitant]
     Active Substance: DEXCHLORPHENIRAMINE MALEATE
     Dates: start: 20200106, end: 20200129
  27. ZYRTEC (JAPAN) [Concomitant]
     Dates: start: 20200218
  28. VANCOMYCIN [Concomitant]
     Active Substance: VANCOMYCIN
     Route: 042
     Dates: start: 20200210, end: 20200212
  29. ONCOVIN [Concomitant]
     Active Substance: VINCRISTINE SULFATE
     Route: 042
     Dates: start: 20191216, end: 20200129
  30. OXINORM (JAPAN) [Concomitant]
     Active Substance: OXYCODONE HYDROCHLORIDE
     Indication: BACK PAIN
     Dates: start: 20190611, end: 20190628
  31. DEXART [Concomitant]
     Active Substance: DEXAMETHASONE SODIUM PHOSPHATE
     Dates: start: 20190823, end: 20191122
  32. MILTAX PAP [Concomitant]
     Indication: NECK PAIN
     Dates: start: 20190629
  33. SODIUM PICOSULFATE [Concomitant]
     Active Substance: SODIUM PICOSULFATE
     Indication: CONSTIPATION
     Dosage: SOLUTION
     Dates: start: 20190630, end: 20190630
  34. SODIUM PICOSULFATE [Concomitant]
     Active Substance: SODIUM PICOSULFATE
     Dates: start: 20191213, end: 20200205
  35. SENNOSIDE [Concomitant]
     Active Substance: SENNOSIDES
     Indication: CONSTIPATION
     Dates: start: 20190630, end: 20190707
  36. EVE A [Concomitant]
     Active Substance: APRONALIDE\CAFFEINE\IBUPROFEN
     Indication: BACK PAIN
     Dates: start: 20191106
  37. SYMPROIC [Concomitant]
     Active Substance: NALDEMEDINE
     Dates: start: 20191205, end: 20200208
  38. LYRICA [Concomitant]
     Active Substance: PREGABALIN
     Dates: start: 20200218, end: 20200219
  39. TARLIGE [Concomitant]
     Active Substance: MIROGABALIN BESYLATE
     Dates: start: 20200217, end: 20200218
  40. LANSOPRAZOLE. [Concomitant]
     Active Substance: LANSOPRAZOLE
     Dates: start: 20191214
  41. ZOPICLONE [Concomitant]
     Active Substance: ZOPICLONE
     Dates: start: 20191215
  42. KCL [Concomitant]
     Active Substance: POTASSIUM CHLORIDE
     Dates: start: 20200209, end: 20200209
  43. ZYPREXA [Concomitant]
     Active Substance: OLANZAPINE
     Dates: start: 20191220, end: 20200207
  44. FLUCONAZOLE. [Concomitant]
     Active Substance: FLUCONAZOLE
     Dates: start: 20191230, end: 20200106
  45. PREDONINE [Concomitant]
     Active Substance: PREDNISOLONE
     Route: 042
     Dates: start: 20191216, end: 20200129
  46. OXINORM (JAPAN) [Concomitant]
     Active Substance: OXYCODONE HYDROCHLORIDE
     Indication: BACK PAIN
     Dates: start: 20191212, end: 20191225
  47. OXINORM (JAPAN) [Concomitant]
     Active Substance: OXYCODONE HYDROCHLORIDE
     Dates: start: 20200304, end: 20200309
  48. OXINORM (JAPAN) [Concomitant]
     Active Substance: OXYCODONE HYDROCHLORIDE
     Dates: start: 20200309, end: 20200309
  49. DEXART [Concomitant]
     Active Substance: DEXAMETHASONE SODIUM PHOSPHATE
     Dosage: CYCLE 2 DAY 1?START TIME: 10:16?END TIME: 10:58
     Route: 042
     Dates: start: 20190725, end: 20190725
  50. DEXART [Concomitant]
     Active Substance: DEXAMETHASONE SODIUM PHOSPHATE
     Dosage: CYCLE 6 DAY 1?START TIME: 10:06?END TIME: 10:40
     Route: 042
     Dates: start: 20191121, end: 20191121
  51. ALOXI [Concomitant]
     Active Substance: PALONOSETRON HYDROCHLORIDE
     Dosage: INFUSION BAG
     Route: 042
     Dates: start: 20190725, end: 20190725
  52. VOALLA [Concomitant]
     Indication: LYMPHORRHOEA
     Dates: start: 20190725, end: 20190725
  53. VOLTAREN [Concomitant]
     Active Substance: DICLOFENAC SODIUM
     Indication: BACK PAIN
     Dates: start: 20191017, end: 20191020
  54. D?CHLORPHENIRAMINE MALEATE [Concomitant]
     Active Substance: DEXCHLORPHENIRAMINE MALEATE
     Indication: PREMEDICATION
     Dosage: CYCLE 1 DAY 1?START TIME: 10:23?END TIME: 10:23
     Route: 048
     Dates: start: 20190626, end: 20190626
  55. D?CHLORPHENIRAMINE MALEATE [Concomitant]
     Active Substance: DEXCHLORPHENIRAMINE MALEATE
     Dosage: CYCLE 6 DAY 1?START TIME: 10:05?END TIME: 10:05
     Route: 048
     Dates: start: 20191121, end: 20191121
  56. LYRICA [Concomitant]
     Active Substance: PREGABALIN
     Dates: start: 20200220, end: 20200223
  57. KCL [Concomitant]
     Active Substance: POTASSIUM CHLORIDE
     Dates: start: 20200202, end: 20200206
  58. DEXART [Concomitant]
     Active Substance: DEXAMETHASONE SODIUM PHOSPHATE
     Indication: PREMEDICATION
     Dates: start: 20190627, end: 20190628
  59. DEXART [Concomitant]
     Active Substance: DEXAMETHASONE SODIUM PHOSPHATE
     Dosage: CYCLE 3 DAY 1?START TIME: 10:25?END TIME: 10:55
     Route: 042
     Dates: start: 20190822, end: 20190822
  60. DEXART [Concomitant]
     Active Substance: DEXAMETHASONE SODIUM PHOSPHATE
     Dosage: CYCLE 4 DAY 1?START TIME: 09:59?END TIME: 10:37
     Route: 042
     Dates: start: 20190919, end: 20190919
  61. DEXART [Concomitant]
     Active Substance: DEXAMETHASONE SODIUM PHOSPHATE
     Dosage: CYCLE 5 DAY 1?START TIME: 11:42?END TIME: 12:12
     Route: 042
     Dates: start: 20191024, end: 20191024
  62. METHYCOBAL [Concomitant]
     Active Substance: METHYLCOBALAMIN
     Indication: DEAFNESS NEUROSENSORY
     Dates: start: 20190808, end: 20190815
  63. VOLTAREN [Concomitant]
     Active Substance: DICLOFENAC SODIUM
     Indication: BACK PAIN
     Dates: start: 20191021, end: 20191022
  64. OXYCODONE [Concomitant]
     Active Substance: OXYCODONE
     Dates: start: 20191223, end: 20191225
  65. OXYCODONE [Concomitant]
     Active Substance: OXYCODONE
     Dates: start: 20200227, end: 20200228
  66. OXYCODONE [Concomitant]
     Active Substance: OXYCODONE
     Dates: start: 20200302, end: 20200303
  67. OXYCODONE [Concomitant]
     Active Substance: OXYCODONE
     Dates: start: 20200305, end: 20200305
  68. FEXOFENADINE HYDROCHLORIDE. [Concomitant]
     Active Substance: FEXOFENADINE HYDROCHLORIDE
     Indication: PRURITUS
     Dates: start: 20191205, end: 20200106
  69. D?CHLORPHENIRAMINE MALEATE [Concomitant]
     Active Substance: DEXCHLORPHENIRAMINE MALEATE
     Dosage: CYCLE 1 DAY 15?START TIME: 10:44?END TIME: 10:44
     Route: 048
     Dates: start: 20190711, end: 20190711
  70. PREDONINE [Concomitant]
     Active Substance: PREDNISOLONE
     Route: 042
     Dates: start: 20200202, end: 20200203
  71. OXINORM (JAPAN) [Concomitant]
     Active Substance: OXYCODONE HYDROCHLORIDE
     Dates: start: 20200226, end: 20200227
  72. DAIPHEN [Concomitant]
     Active Substance: SULFAMETHOXAZOLE\TRIMETHOPRIM
     Dates: start: 20190627
  73. DEXART [Concomitant]
     Active Substance: DEXAMETHASONE SODIUM PHOSPHATE
     Dosage: CYCLE 1 DAY 8 ?START TIME: 09:27?END TIME: 09:58
     Route: 042
     Dates: start: 20190703, end: 20190703
  74. ALOXI [Concomitant]
     Active Substance: PALONOSETRON HYDROCHLORIDE
     Dosage: INFUSION BAG
     Route: 042
     Dates: start: 20190822, end: 20191121
  75. SENNOSIDE [Concomitant]
     Active Substance: SENNOSIDES
     Dates: start: 20191209
  76. CALONAL [Concomitant]
     Active Substance: ACETAMINOPHEN
     Dosage: CYCLE 1 DAY 15?START TIME:11:19?END TIME: 11:19
     Route: 048
     Dates: start: 20190711, end: 20190711
  77. CALONAL [Concomitant]
     Active Substance: ACETAMINOPHEN
     Dosage: CYCLE 2 DAY 1?START TIME:10:13?END TIME: 10:13
     Route: 048
     Dates: start: 20190725, end: 20190725
  78. EVE A [Concomitant]
     Active Substance: APRONALIDE\CAFFEINE\IBUPROFEN
     Indication: BACK PAIN
     Dates: start: 20191023, end: 20191023
  79. OXYCODONE [Concomitant]
     Active Substance: OXYCODONE
     Indication: BACK PAIN
     Route: 048
     Dates: start: 20191205, end: 20191210
  80. OXYCODONE [Concomitant]
     Active Substance: OXYCODONE
     Route: 048
     Dates: start: 20191210, end: 20191212
  81. LYRICA [Concomitant]
     Active Substance: PREGABALIN
     Dates: start: 20200214, end: 20200218
  82. HYDROCORTONE [Concomitant]
     Active Substance: HYDROCORTISONE
     Dates: start: 20200106, end: 20200129
  83. SERENACE [Concomitant]
     Active Substance: HALOPERIDOL
     Dates: start: 20200208, end: 20200225
  84. PRIMPERAN [Concomitant]
     Active Substance: METOCLOPRAMIDE HYDROCHLORIDE
     Dates: start: 20191120, end: 20200210
  85. VICCILLIN [Concomitant]
     Active Substance: AMPICILLIN
     Route: 042
     Dates: start: 20200210, end: 20200212
  86. PREDONINE [Concomitant]
     Active Substance: PREDNISOLONE
     Route: 042
     Dates: start: 20191214, end: 20200201
  87. ENDOXAN [Concomitant]
     Active Substance: CYCLOPHOSPHAMIDE
     Route: 042
     Dates: start: 20191116, end: 20200129
  88. OXINORM (JAPAN) [Concomitant]
     Active Substance: OXYCODONE HYDROCHLORIDE
     Dates: start: 20200309, end: 20200309
  89. KARY UNI [Concomitant]
     Active Substance: PIRENOXINE
     Indication: CATARACT
     Route: 047
     Dates: start: 2014
  90. RESTAMINE [Concomitant]
     Indication: ECZEMA
     Dosage: KOWA CREAM
     Dates: start: 20190303
  91. ALOXI [Concomitant]
     Active Substance: PALONOSETRON HYDROCHLORIDE
     Dosage: INFUSION BAG
     Route: 042
     Dates: start: 20191116, end: 20200129
  92. MILTAX PAP [Concomitant]
     Indication: BACK PAIN
  93. SUCRODE PASTA [Concomitant]
     Indication: LYMPHORRHOEA
     Dates: start: 20190823, end: 20190919
  94. OXYCODONE [Concomitant]
     Active Substance: OXYCODONE
     Dates: start: 20191212, end: 20191212
  95. OXYCODONE [Concomitant]
     Active Substance: OXYCODONE
     Dates: start: 20191225, end: 20200101
  96. D?CHLORPHENIRAMINE MALEATE [Concomitant]
     Active Substance: DEXCHLORPHENIRAMINE MALEATE
     Dosage: CYCLE 4 DAY 1?START TIME: 10:17?END TIME: 10:17
     Route: 048
     Dates: start: 20190919, end: 20190919
  97. ACELIO [Concomitant]
     Active Substance: ACETAMINOPHEN
     Route: 042
     Dates: start: 20191230, end: 20191230
  98. KCL [Concomitant]
     Active Substance: POTASSIUM CHLORIDE
     Dates: start: 20200212, end: 20200212
  99. ROZEREM [Concomitant]
     Active Substance: RAMELTEON
     Dates: start: 20200218
  100. BENDAMUSTINE [Suspect]
     Active Substance: BENDAMUSTINE
     Indication: FOLLICULAR LYMPHOMA
     Dosage: ADMINISTERED ON DAYS 1 AND 2 FOR CYCLES 1?6 AT A DOSE OF 90 MG/M2/DAY, FOR SIX 28?DAY CYCLES.?DATE O
     Route: 042
     Dates: start: 20190627
  101. OXINORM (JAPAN) [Concomitant]
     Active Substance: OXYCODONE HYDROCHLORIDE
     Dates: start: 20191225, end: 20200201
  102. DEXART [Concomitant]
     Active Substance: DEXAMETHASONE SODIUM PHOSPHATE
     Dates: start: 20190726, end: 20190726
  103. ALOXI [Concomitant]
     Active Substance: PALONOSETRON HYDROCHLORIDE
     Dosage: INFUSION BAG
     Route: 042
     Dates: start: 20190627, end: 20190628
  104. ADETPHOS [Concomitant]
     Active Substance: ADENOSINE TRIPHOSPHATE
     Indication: DEAFNESS NEUROSENSORY
     Dosage: KOWA GARNULE 10 %
     Dates: start: 20190808, end: 20190815
  105. PROCYLIN [Concomitant]
     Active Substance: BERAPROST SODIUM
     Indication: DEAFNESS NEUROSENSORY
     Dates: start: 20190808, end: 20190815
  106. CALONAL [Concomitant]
     Active Substance: ACETAMINOPHEN
     Indication: BACK PAIN
     Dates: start: 20191022, end: 20191022
  107. CALONAL [Concomitant]
     Active Substance: ACETAMINOPHEN
     Indication: PREMEDICATION
     Dosage: CYCLE 1 DAY 1?START TIME:10:23?END TIME: 10:23
     Route: 048
     Dates: start: 20190626, end: 20190626
  108. CALONAL [Concomitant]
     Active Substance: ACETAMINOPHEN
     Dosage: CYCLE 1 DAY 8?START TIME:10:20?END TIME: 10:20
     Route: 048
     Dates: start: 20190703, end: 20190703
  109. CALONAL [Concomitant]
     Active Substance: ACETAMINOPHEN
     Dosage: CYCLE 4 DAY 1?START TIME:10:17?END TIME: 10:17
     Route: 048
     Dates: start: 20190919, end: 20190919
  110. CALONAL [Concomitant]
     Active Substance: ACETAMINOPHEN
     Dosage: CYCLE 6 DAY 1?START TIME:10:05?END TIME: 10:05
     Route: 048
     Dates: start: 20191121, end: 20191121
  111. OXYCODONE [Concomitant]
     Active Substance: OXYCODONE
     Dates: start: 20200301, end: 20200301
  112. D?CHLORPHENIRAMINE MALEATE [Concomitant]
     Active Substance: DEXCHLORPHENIRAMINE MALEATE
     Dosage: CYCLE 1 DAY 8?START TIME: 10:20?END TIME: 10:20
     Route: 048
     Dates: start: 20190703, end: 20190703
  113. MILTAX PAP [Concomitant]
     Dates: start: 20200204, end: 20200316
  114. FILGRASTIM [Concomitant]
     Active Substance: FILGRASTIM
     Dates: start: 20191223, end: 20191228
  115. G?LASTA [Concomitant]
     Active Substance: PEGFILGRASTIM
     Dates: start: 20200109, end: 20200109
  116. KCL [Concomitant]
     Active Substance: POTASSIUM CHLORIDE
     Dates: start: 20200208, end: 20200211
  117. MAGNESIUM SULFATE. [Concomitant]
     Active Substance: MAGNESIUM SULFATE
     Dates: start: 20200219, end: 20200221
  118. ATARAX?P [Concomitant]
     Active Substance: HYDROXYZINE HYDROCHLORIDE
     Dates: start: 20200208, end: 20200225
  119. ACTOSIN OINTMENT [Concomitant]
     Dates: start: 20200214, end: 20200228
  120. TRAVELMIN [DIPHENHYDRAMINE;DIPROPHYLLINE] [Concomitant]
     Dates: start: 20200206, end: 20200208
  121. RITUXIMAB. [Concomitant]
     Active Substance: RITUXIMAB
     Route: 041
     Dates: start: 20191213, end: 20200129
  122. CEFEPIME DIHYDROCHLORIDE [Concomitant]
     Active Substance: CEFEPIME HYDROCHLORIDE
     Route: 042
     Dates: start: 20200207, end: 20200210

REACTIONS (1)
  - Disseminated varicella zoster virus infection [Recovered/Resolved]

NARRATIVE: CASE EVENT DATE: 20200131
